FAERS Safety Report 18033788 (Version 3)
Quarter: 2022Q2

REPORT INFORMATION
  Report Type: Spontaneous
  Country: US (occurrence: US)
  Receive Date: 20200716
  Receipt Date: 20220407
  Transmission Date: 20220721
  Serious: Yes (Death)
  Sender: FDA-Public Use
  Company Number: US-THERATECHNOLOGIES EUROPE LIMITED-2020-THE-IBA-000133

PATIENT
  Age: 47 Year
  Sex: Male

DRUGS (10)
  1. TROGARZO [Suspect]
     Active Substance: IBALIZUMAB-UIYK
     Indication: HIV infection
     Dosage: 800 MG EVERY 2 WEEKS
     Route: 042
     Dates: start: 201811
  2. TROGARZO [Suspect]
     Active Substance: IBALIZUMAB-UIYK
     Indication: Acquired immunodeficiency syndrome
     Dosage: 800 MG EVERY 2 WEEKS
     Route: 042
     Dates: start: 201907
  3. TROGARZO [Suspect]
     Active Substance: IBALIZUMAB-UIYK
     Dosage: 800 MG EVERY 2 WEEKS
     Route: 042
     Dates: start: 202111
  4. DESCOVY [Concomitant]
     Active Substance: EMTRICITABINE\TENOFOVIR ALAFENAMIDE FUMARATE
     Indication: HIV infection
     Dosage: 200/25 MG, QD
     Route: 048
     Dates: start: 2018
  5. TIVICAY [Concomitant]
     Active Substance: DOLUTEGRAVIR SODIUM
     Indication: HIV infection
     Dosage: 50 MG, BID
     Route: 048
     Dates: start: 2018
  6. PREZISTA [Concomitant]
     Active Substance: DARUNAVIR ETHANOLATE
     Indication: HIV infection
     Dosage: 600 MG, BID
     Route: 048
     Dates: start: 2018
  7. NORVIR [Concomitant]
     Active Substance: RITONAVIR
     Indication: HIV infection
     Dosage: 100 MG, BID
     Route: 048
     Dates: start: 2018
  8. PIFELTRO [Concomitant]
     Active Substance: DORAVIRINE
     Indication: HIV infection
     Dosage: 100 MG, QD
     Route: 048
     Dates: start: 202109
  9. RUKOBIA [Concomitant]
     Active Substance: FOSTEMSAVIR TROMETHAMINE
     Indication: HIV infection
     Dosage: 600 MG, BID
     Route: 048
     Dates: start: 2018
  10. DAPSONE [Concomitant]
     Active Substance: DAPSONE
     Indication: Antifungal prophylaxis
     Dosage: 100 MG, QD
     Route: 048

REACTIONS (3)
  - Central nervous system lymphoma [Fatal]
  - Rash [Unknown]
  - Rash [Unknown]

NARRATIVE: CASE EVENT DATE: 20200705
